FAERS Safety Report 8785064 (Version 1)
Quarter: 2012Q4

REPORT INFORMATION
  Report Type: Spontaneous
  Country: US (occurrence: None)
  Receive Date: 20120831
  Receipt Date: 20120831
  Transmission Date: 20130627
  Serious: Yes (Other)
  Sender: FDA-Public Use
  Company Number: 7156865

PATIENT
  Age: 0 Day

DRUGS (1)
  1. EUTHYROX [Suspect]
     Indication: ACCIDENTAL DRUG INTAKE BY CHILD
     Route: 048
     Dates: start: 20120725, end: 20120725

REACTIONS (2)
  - Accidental exposure to product by child [None]
  - No adverse event [None]
